FAERS Safety Report 5270354-5 (Version None)
Quarter: 2007Q1

REPORT INFORMATION
  Report Type: 
  Country: None (occurrence: None)
  Receive Date: 20070320
  Receipt Date: 20070309
  Transmission Date: 20070707
  Serious: Yes (Hospitalization, Other)
  Sender: FDA-Public Use
  Company Number: AU-PFIZER INC-2007009691

PATIENT
  Sex: Female
  Weight: 46 kg

DRUGS (31)
  1. REVATIO [Suspect]
  2. RULIDE [Concomitant]
  3. BACTRIM DS [Concomitant]
     Dates: start: 20060116
  4. BOSENTAN [Concomitant]
     Dates: start: 20051009
  5. PANAFCORTELONE [Concomitant]
     Dates: start: 20060403
  6. NEXIUM [Concomitant]
     Dates: start: 20031017
  7. CAPTOPRIL [Concomitant]
     Dates: start: 20060419
  8. NORVASC [Concomitant]
     Dates: start: 20060316
  9. VALTREX [Concomitant]
     Dates: start: 20050923
  10. AMITRIPTYLINE HCL [Concomitant]
     Dates: start: 20060315
  11. ZOLPIDEM TARTRATE [Concomitant]
  12. MOBIC [Concomitant]
     Dates: start: 20051101
  13. CELEBREX [Concomitant]
     Dates: start: 20051101
  14. TRAMAL - SLOW RELEASE [Concomitant]
  15. MERSYNDOL [Concomitant]
     Dates: start: 20060403
  16. OSTELIN [Concomitant]
     Dates: start: 20040505
  17. CITRACAL [Concomitant]
     Dates: start: 20040505
  18. FOSAMAX [Concomitant]
     Dates: start: 20030907
  19. BISOLVON [Concomitant]
     Dates: start: 20010901
  20. CYCLOSPORINE [Concomitant]
     Route: 031
     Dates: start: 20010903
  21. FOLIC ACID [Concomitant]
  22. FERROGRADUMET [Concomitant]
  23. OMEGA 3 [Concomitant]
  24. VITAMINS [Concomitant]
  25. ORALBALANCE [Concomitant]
  26. BION TEARS [Concomitant]
  27. LOPERAMIDE HCL [Concomitant]
     Dates: start: 20030701
  28. SINEMET [Concomitant]
  29. NASAL SALINE [Concomitant]
  30. ALL OTHER THERAPEUTIC PRODUCTS [Concomitant]
  31. OVESTIN [Concomitant]

REACTIONS (6)
  - GASTRIC HAEMORRHAGE [None]
  - HAEMOGLOBIN DECREASED [None]
  - HAEMOLYSIS [None]
  - RENAL DISORDER [None]
  - SCLERODERMA [None]
  - THROMBOCYTOPENIA [None]
